FAERS Safety Report 6639714-1 (Version None)
Quarter: 2010Q1

REPORT INFORMATION
  Report Type: 
  Country: None (occurrence: None)
  Receive Date: 20100315
  Receipt Date: 20100304
  Transmission Date: 20100710
  Serious: Yes (Hospitalization)
  Sender: FDA-Public Use
  Company Number: SPV1-2010-00200

PATIENT
  Age: 56 Year
  Sex: Female

DRUGS (10)
  1. FOSRENOL [Suspect]
     Indication: HYPERPHOSPHATAEMIA
     Dates: start: 20090413, end: 20090427
  2. FOSRENOL [Suspect]
     Indication: HYPERPHOSPHATAEMIA
     Dates: start: 20090428, end: 20090730
  3. MAXIPIME [Suspect]
     Dates: end: 20090722
  4. CALTAN (CALCIUM CARBONATE) [Concomitant]
  5. ROCALTROL [Concomitant]
  6. MICARDIS [Concomitant]
  7. PROTECADIN (LAFUTIDINE) [Concomitant]
  8. YODEL (SENNA ALEXANDRINA) [Concomitant]
  9. VASOLAN /00014302/ (VERAPAMIL HYDROCHLORIDE) [Concomitant]
  10. MUCOSTA (REBAMIPIDE) [Concomitant]

REACTIONS (9)
  - ACUTE MYOCARDIAL INFARCTION [None]
  - ALANINE AMINOTRANSFERASE INCREASED [None]
  - ASPARTATE AMINOTRANSFERASE INCREASED [None]
  - BLOOD ALKALINE PHOSPHATASE INCREASED [None]
  - BLOOD LACTATE DEHYDROGENASE INCREASED [None]
  - CHEST PAIN [None]
  - GAMMA-GLUTAMYLTRANSFERASE INCREASED [None]
  - HEPATIC FUNCTION ABNORMAL [None]
  - PYREXIA [None]
